FAERS Safety Report 23412899 (Version 1)
Quarter: 2024Q1

REPORT INFORMATION
  Report Type: Spontaneous
  Country: US (occurrence: US)
  Receive Date: 20240117
  Receipt Date: 20240117
  Transmission Date: 20240410
  Serious: No
  Sender: FDA-Public Use
  Company Number: US-NOVOPROD-1109898

PATIENT

DRUGS (1)
  1. OZEMPIC [Suspect]
     Active Substance: SEMAGLUTIDE
     Indication: Product use in unapproved indication
     Dosage: UNK
     Route: 058
     Dates: start: 202201, end: 202307

REACTIONS (4)
  - Weight increased [Unknown]
  - Insomnia [Unknown]
  - Headache [Unknown]
  - Inappropriate schedule of product administration [Unknown]
